FAERS Safety Report 10151466 (Version 1)
Quarter: 2014Q2

REPORT INFORMATION
  Report Type: Spontaneous
  Country: CA (occurrence: CA)
  Receive Date: 20140502
  Receipt Date: 20140502
  Transmission Date: 20141212
  Serious: Yes (Other)
  Sender: FDA-Public Use
  Company Number: CA-VERTEX PHARMACEUTICALS INC-2014-002064

PATIENT
  Age: 50 Year
  Sex: Male
  Weight: 64 kg

DRUGS (6)
  1. INCIVEK [Suspect]
     Indication: HEPATITIS C
     Dosage: 375 MG, TID
     Route: 048
  2. PEGASYS [Suspect]
     Indication: HEPATITIS C
     Dosage: UNK
     Route: 058
  3. RIBAVIRIN [Suspect]
     Indication: HEPATITIS C
     Dosage: 600 MG, BID
     Route: 048
  4. AZOPT [Concomitant]
     Route: 065
  5. FILGRASTIM [Concomitant]
     Route: 065
  6. XALATAN [Concomitant]
     Route: 065

REACTIONS (2)
  - Incorrect dose administered [Unknown]
  - Erythema multiforme [Unknown]
